FAERS Safety Report 8576426-1 (Version None)
Quarter: 2012Q3

REPORT INFORMATION
  Report Type: 
  Country: None (occurrence: None)
  Receive Date: 20120807
  Receipt Date: 20120731
  Transmission Date: 20120928
  Serious: Yes (Other)
  Sender: FDA-Public Use
  Company Number: CA-ROCHE-1088047

PATIENT
  Sex: Female
  Weight: 83.082 kg

DRUGS (6)
  1. ACTEMRA [Suspect]
     Dosage: DRUG RESTARTED
  2. SULFASALAZINE [Concomitant]
  3. FOLIC ACID [Concomitant]
  4. ACTEMRA [Suspect]
     Indication: RHEUMATOID ARTHRITIS
     Route: 042
     Dates: start: 20120227, end: 20120411
  5. METRONIDAZOLE [Concomitant]
  6. HYDROXYZINE [Concomitant]

REACTIONS (4)
  - PSORIASIS [None]
  - FOLLICULITIS [None]
  - CYST [None]
  - CONJUNCTIVITIS [None]
